FAERS Safety Report 7546250-7 (Version None)
Quarter: 2011Q2

REPORT INFORMATION
  Report Type: 
  Country: None (occurrence: None)
  Receive Date: 20110614
  Receipt Date: 20040319
  Transmission Date: 20111010
  Serious: Yes (Death, Other)
  Sender: FDA-Public Use
  Company Number: PHFR2004GB00799

PATIENT
  Sex: Male

DRUGS (1)
  1. CLOZAPINE [Suspect]
     Indication: SCHIZOPHRENIA
     Dosage: 250 MG/DAILY
     Route: 048
     Dates: start: 20020121

REACTIONS (3)
  - PARKINSON'S DISEASE [None]
  - SUDDEN DEATH [None]
  - CARDIAC DISORDER [None]
